FAERS Safety Report 5262331-5 (Version None)
Quarter: 2007Q1

REPORT INFORMATION
  Report Type: 
  Country: None (occurrence: None)
  Receive Date: 20070308
  Receipt Date: 20070228
  Transmission Date: 20070707
  Serious: Yes (Hospitalization)
  Sender: FDA-Public Use
  Company Number: 15509

PATIENT
  Age: 75 Year
  Sex: Female
  Weight: 86.8 kg

DRUGS (3)
  1. DACARBAZINE [Suspect]
     Indication: MALIGNANT MELANOMA STAGE IV
     Dosage: 1800 MG FREQ UNK IV
     Route: 042
     Dates: start: 20070111
  2. DACARBAZINE [Suspect]
     Indication: MALIGNANT MELANOMA STAGE IV
     Dosage: 1800 MG FREQ UNK IV
     Route: 042
     Dates: start: 20061221
  3. BOSENTAN 500 MG BID OR PLACEBO (CODE NOT BROKEN) [Suspect]
     Indication: MALIGNANT MELANOMA STAGE IV
     Dosage: 500 MG BID PO
     Route: 048
     Dates: start: 20061221

REACTIONS (3)
  - DEHYDRATION [None]
  - DIARRHOEA [None]
  - VOMITING [None]
